FAERS Safety Report 21906057 (Version 1)
Quarter: 2023Q1

REPORT INFORMATION
  Report Type: Other
  Country: FI (occurrence: FI)
  Receive Date: 20230124
  Receipt Date: 20230124
  Transmission Date: 20230417
  Serious: Yes (Disabling, Other)
  Sender: FDA-Public Use
  Company Number: FI-CELLTRION INC.-2023FI001216

PATIENT

DRUGS (1)
  1. INFLIXIMAB [Suspect]
     Active Substance: INFLIXIMAB
     Indication: Colitis ulcerative
     Dosage: UNK
     Route: 042
     Dates: start: 202204

REACTIONS (2)
  - Hemiparesis [Unknown]
  - Tremor [Unknown]

NARRATIVE: CASE EVENT DATE: 20220701
